FAERS Safety Report 5834757-X (Version None)
Quarter: 2008Q3

REPORT INFORMATION
  Report Type: 
  Country: None (occurrence: None)
  Receive Date: 20080801
  Receipt Date: 20080723
  Transmission Date: 20090109
  Serious: Yes (Life-Threatening, Hospitalization)
  Sender: FDA-Public Use
  Company Number: 2008-02649

PATIENT
  Age: 58 Year
  Sex: Male

DRUGS (2)
  1. VELCADE [Suspect]
     Indication: MULTIPLE MYELOMA
     Dosage: 2.4 MG, INTRAVENOUS
     Route: 042
     Dates: start: 20080717, end: 20080717
  2. ACYCLOVIR [Concomitant]

REACTIONS (11)
  - ACUTE ABDOMEN [None]
  - ASCITES [None]
  - ATELECTASIS [None]
  - CHILLS [None]
  - DIARRHOEA [None]
  - DISSEMINATED INTRAVASCULAR COAGULATION [None]
  - MULTI-ORGAN FAILURE [None]
  - PLEURAL EFFUSION [None]
  - PYREXIA [None]
  - RECTAL HAEMORRHAGE [None]
  - SEPTIC SHOCK [None]
